FAERS Safety Report 25918089 (Version 2)
Quarter: 2025Q4

REPORT INFORMATION
  Report Type: Report from Study
  Country: US (occurrence: None)
  Receive Date: 20251014
  Receipt Date: 20251112
  Transmission Date: 20260118
  Serious: Yes (Hospitalization, Other)
  Sender: CHIESI
  Company Number: US-CHIESI-2025CHF06922

PATIENT
  Sex: Female

DRUGS (3)
  1. BIRCH BARK\HERBALS [Suspect]
     Active Substance: BIRCH BARK\HERBALS
     Indication: Epidermolysis bullosa
     Dosage: UNK UNK, QD
     Dates: start: 202406
  2. VYJUVEK [Concomitant]
     Active Substance: BEREMAGENE GEPERPAVEC-SVDT
     Indication: Product used for unknown indication
     Dosage: UNK
  3. DUPIXENT [Concomitant]
     Active Substance: DUPILUMAB
     Indication: Product used for unknown indication
     Dosage: UNK

REACTIONS (6)
  - Bacterial infection [Unknown]
  - Failure to thrive [Unknown]
  - Wound infection [Not Recovered/Not Resolved]
  - Underweight [Not Recovered/Not Resolved]
  - Infection [Unknown]
  - Blister [Unknown]

NARRATIVE: CASE EVENT DATE: 20250101
